FAERS Safety Report 8506795-X (Version None)
Quarter: 2012Q3

REPORT INFORMATION
  Report Type: 
  Country: None (occurrence: None)
  Receive Date: 20120712
  Receipt Date: 20120709
  Transmission Date: 20120928
  Serious: Yes (Disabling, Congenital Anomaly)
  Sender: FDA-Public Use
  Company Number: FR-BAYER-2012-025125

PATIENT

DRUGS (1)
  1. MOXIFLOXACIN HCL [Suspect]

REACTIONS (3)
  - LIMB MALFORMATION [None]
  - SPINE MALFORMATION [None]
  - LIMB HYPOPLASIA CONGENITAL [None]
